FAERS Safety Report 14535417 (Version 1)
Quarter: 2018Q1

REPORT INFORMATION
  Report Type: Spontaneous
  Country: US (occurrence: US)
  Receive Date: 20180215
  Receipt Date: 20180215
  Transmission Date: 20180509
  Serious: Yes (Other)
  Sender: FDA-Public Use
  Company Number: US-GLAXOSMITHKLINE-US2018GSK024562

PATIENT
  Age: 6 Month
  Sex: Female

DRUGS (1)
  1. LAMICTAL [Suspect]
     Active Substance: LAMOTRIGINE
     Indication: PRODUCT USED FOR UNKNOWN INDICATION
     Dosage: 150 MG, (5 PILLS MISSING AND ABOUT 5 TO 10 PILLS APPEARED TO HAVE BEEN ^SUCKED^ ON)
     Route: 048

REACTIONS (9)
  - Irregular breathing [Recovering/Resolving]
  - Status epilepticus [Recovering/Resolving]
  - Accidental overdose [Recovering/Resolving]
  - Pupil fixed [Recovering/Resolving]
  - Generalised tonic-clonic seizure [Recovering/Resolving]
  - Brain herniation [Recovering/Resolving]
  - Hypotension [Recovering/Resolving]
  - Condition aggravated [Recovering/Resolving]
  - Accidental exposure to product by child [Recovering/Resolving]
